FAERS Safety Report 13442670 (Version 3)
Quarter: 2017Q3

REPORT INFORMATION
  Report Type: Spontaneous
  Country: DE (occurrence: DE)
  Receive Date: 20170414
  Receipt Date: 20170721
  Transmission Date: 20171127
  Serious: Yes (Hospitalization, Other)
  Sender: FDA-Public Use
  Company Number: DE-SA-2017SA062299

PATIENT
  Age: 46 Year
  Sex: Female

DRUGS (2)
  1. LEMTRADA [Suspect]
     Active Substance: ALEMTUZUMAB
     Indication: RELAPSING-REMITTING MULTIPLE SCLEROSIS
     Route: 041
     Dates: start: 20160201
  2. FAMPYRA [Concomitant]
     Active Substance: DALFAMPRIDINE
     Indication: RELAPSING-REMITTING MULTIPLE SCLEROSIS
     Route: 048

REACTIONS (13)
  - Insomnia [Recovering/Resolving]
  - Red blood cells urine positive [Unknown]
  - Autoimmune thyroiditis [Recovering/Resolving]
  - Heart rate irregular [Recovering/Resolving]
  - Hyperthyroidism [Recovering/Resolving]
  - Fatigue [Recovering/Resolving]
  - Heart rate increased [Recovering/Resolving]
  - Urinary tract infection [Unknown]
  - Nephritis [Unknown]
  - Haematuria [Not Recovered/Not Resolved]
  - Muscular weakness [Recovering/Resolving]
  - Depression [Recovering/Resolving]
  - Mood swings [Recovering/Resolving]

NARRATIVE: CASE EVENT DATE: 20170405
